FAERS Safety Report 13562278 (Version 2)
Quarter: 2021Q3

REPORT INFORMATION
  Report Type: Report from Study
  Country: US (occurrence: US)
  Receive Date: 20170519
  Receipt Date: 20210811
  Transmission Date: 20211014
  Serious: Yes (Hospitalization)
  Sender: FDA-Public Use
  Company Number: US-AMGEN-USACT2017073472

PATIENT
  Age: 74 Year
  Sex: Female
  Weight: 70.1 kg

DRUGS (10)
  1. SENNA [Concomitant]
     Active Substance: SENNA LEAF\SENNOSIDES\SENNOSIDES A AND B
     Dosage: 17.2 MILLIGRAM, QD
     Route: 048
  2. DEXAMETHASONE. [Suspect]
     Active Substance: DEXAMETHASONE
     Indication: PLASMA CELL MYELOMA
     Dosage: 20 MILLIGRAM, PER CHEMO REGIM
     Route: 042
     Dates: start: 20170411
  3. MAALOX ANTACID [Concomitant]
     Active Substance: ALUMINUM HYDROXIDE\DIMETHICONE\MAGNESIUM HYDROXIDE
     Dosage: 30 MILLILITER, Q4H
     Route: 048
  4. DOCUSATE SODIUM. [Concomitant]
     Active Substance: DOCUSATE SODIUM
     Dosage: 100 MILLIGRAM, TID
     Route: 048
  5. ACETAMINOPHEN. [Concomitant]
     Active Substance: ACETAMINOPHEN
     Dosage: 650 MILLIGRAM, Q4H
     Route: 048
  6. BENDAMUSTINE [Suspect]
     Active Substance: BENDAMUSTINE
     Indication: PLASMA CELL MYELOMA
     Dosage: 90 MILLIGRAM/SQ. METER, PER CHEMO REGIM
     Route: 042
     Dates: start: 20170411
  7. FAMOTIDINE. [Concomitant]
     Active Substance: FAMOTIDINE
     Dosage: 20 MILLIGRAM, BID
     Route: 048
  8. VALTREX [Concomitant]
     Active Substance: VALACYCLOVIR HYDROCHLORIDE
     Dosage: 500 MILLIGRAM, Q12H
     Route: 048
  9. BISACODYL. [Concomitant]
     Active Substance: BISACODYL
     Dosage: 10 MILLIGRAM, QD
     Route: 054
  10. CARFILZOMIB [Suspect]
     Active Substance: CARFILZOMIB
     Indication: PLASMA CELL MYELOMA
     Dosage: 56 MILLIGRAM/SQ. METER, PER CHEMO REGIM
     Route: 042
     Dates: start: 20170411

REACTIONS (3)
  - Speech disorder [Unknown]
  - Hemiparesis [Unknown]
  - Asthenia [Unknown]

NARRATIVE: CASE EVENT DATE: 20170505
